FAERS Safety Report 7290073-3 (Version None)
Quarter: 2011Q1

REPORT INFORMATION
  Report Type: 
  Country: None (occurrence: None)
  Receive Date: 20110209
  Receipt Date: 20110209
  Transmission Date: 20110831
  Serious: Yes (Other)
  Sender: FDA-Public Use
  Company Number: None

PATIENT
  Age: 55 Year
  Sex: Female

DRUGS (2)
  1. AUGMENTIN '125' [Suspect]
     Dates: start: 20090626, end: 20090629
  2. AVELOX [Suspect]
     Dates: start: 20090630, end: 20090706

REACTIONS (5)
  - ASPARTATE AMINOTRANSFERASE INCREASED [None]
  - RASH [None]
  - ABDOMINAL PAIN [None]
  - ALANINE AMINOTRANSFERASE INCREASED [None]
  - NAUSEA [None]
